FAERS Safety Report 12990498 (Version 2)
Quarter: 2016Q4

REPORT INFORMATION
  Report Type: Spontaneous
  Country: FR (occurrence: FR)
  Receive Date: 20161201
  Receipt Date: 20161229
  Transmission Date: 20170207
  Serious: Yes (Hospitalization)
  Sender: FDA-Public Use
  Company Number: FR-ROCHE-1859477

PATIENT
  Age: 82 Year
  Sex: Male
  Weight: 66 kg

DRUGS (6)
  1. COTELLIC [Suspect]
     Active Substance: COBIMETINIB
     Dosage: HALF DOSAGE
     Route: 048
     Dates: start: 20161122
  2. ZELBORAF [Suspect]
     Active Substance: VEMURAFENIB
     Indication: METASTATIC MALIGNANT MELANOMA
     Route: 048
     Dates: start: 20161107
  3. LOXEN (FRANCE) [Concomitant]
     Active Substance: NICARDIPINE HYDROCHLORIDE
     Indication: HYPERTENSION
     Dosage: TEMPORARY DISCONTINUATION
     Route: 048
  4. ZELBORAF [Suspect]
     Active Substance: VEMURAFENIB
     Dosage: HALF DOSAGE
     Route: 065
     Dates: start: 20161122
  5. COTAREG [Concomitant]
     Active Substance: HYDROCHLOROTHIAZIDE\VALSARTAN
     Indication: HYPERTENSION
     Dosage: 160/12.5?TEMPORARY DISCONTINUATION
     Route: 048
  6. COTELLIC [Suspect]
     Active Substance: COBIMETINIB
     Indication: METASTATIC MALIGNANT MELANOMA
     Route: 048
     Dates: start: 20161107

REACTIONS (4)
  - Vomiting [Unknown]
  - Malaise [Unknown]
  - Diarrhoea [Recovered/Resolved]
  - Acute kidney injury [Not Recovered/Not Resolved]

NARRATIVE: CASE EVENT DATE: 20161119
